FAERS Safety Report 4557932-3 (Version None)
Quarter: 2005Q1

REPORT INFORMATION
  Report Type: 
  Country: None (occurrence: None)
  Receive Date: 20050121
  Receipt Date: 20040205
  Transmission Date: 20050727
  Serious: No
  Sender: FDA-Public Use
  Company Number: US-BRISTOL-MYERS SQUIBB COMPANY-12502704

PATIENT
  Age: 43 Year
  Sex: Female

DRUGS (9)
  1. SERZONE [Suspect]
     Indication: DEPRESSION
     Dosage: UP TO 200 MG THREE TIMES DAILY IN 1995
  2. LEVOTHYROXINE [Concomitant]
  3. XANAX [Concomitant]
  4. ROBAXIN [Concomitant]
  5. ALLEGRA [Concomitant]
  6. PROVENTIL [Concomitant]
  7. ZANTAC [Concomitant]
  8. SYNTHROID [Concomitant]
  9. DURAVENT [Concomitant]

REACTIONS (2)
  - BLOOD ALKALINE PHOSPHATASE INCREASED [None]
  - CHOLELITHIASIS [None]
